FAERS Safety Report 19770073 (Version 2)
Quarter: 2025Q2

REPORT INFORMATION
  Report Type: Report from Study
  Country: NL (occurrence: NL)
  Receive Date: 20210831
  Receipt Date: 20250625
  Transmission Date: 20250716
  Serious: Yes (Other)
  Sender: AUROBINDO
  Company Number: NL-AMAROX PHARMA-AMR2021NL01571

PATIENT

DRUGS (2)
  1. IMATINIB [Suspect]
     Active Substance: IMATINIB
     Indication: COVID-19
     Route: 048
  2. IMATINIB [Suspect]
     Active Substance: IMATINIB
     Route: 048

REACTIONS (2)
  - Haemorrhagic stroke [Unknown]
  - Product use in unapproved indication [Unknown]
